FAERS Safety Report 6684311-5 (Version None)
Quarter: 2010Q2

REPORT INFORMATION
  Report Type: 
  Country: None (occurrence: None)
  Receive Date: 20100416
  Receipt Date: 20100406
  Transmission Date: 20101027
  Serious: Yes (Other)
  Sender: FDA-Public Use
  Company Number: PHEH2006US09630

PATIENT
  Sex: Male
  Weight: 83.9 kg

DRUGS (14)
  1. ZOMETA [Suspect]
     Indication: OSTEOPOROSIS
     Dosage: 4 MG, QMO
     Route: 042
     Dates: start: 20040116, end: 20060922
  2. FOSAMAX [Suspect]
  3. OXYCONTIN [Concomitant]
  4. LORTAB [Concomitant]
  5. ALLEGRA [Concomitant]
  6. LEXAPRO [Concomitant]
  7. FAMOTIDINE [Concomitant]
  8. CLONAZEPAM [Concomitant]
  9. GASTROCROM [Concomitant]
  10. HYDROCODONE BITARTRATE [Concomitant]
  11. MIRALAX [Concomitant]
  12. EPIPEN [Concomitant]
  13. BENADRYL ^PFIZER WARNER-LAMBERT^ [Concomitant]
  14. SENOKOT [Concomitant]

REACTIONS (23)
  - AMNESIA [None]
  - ANXIETY [None]
  - BONE DISORDER [None]
  - BONE FRAGMENTATION [None]
  - BREATH ODOUR [None]
  - BURNING SENSATION [None]
  - DENTAL CARE [None]
  - GINGIVAL DISORDER [None]
  - HAEMORRHAGE [None]
  - INFECTION [None]
  - INJURY [None]
  - OSTEONECROSIS [None]
  - PAIN [None]
  - PAIN IN EXTREMITY [None]
  - PAIN IN JAW [None]
  - SENSITIVITY OF TEETH [None]
  - SINUS POLYP [None]
  - SINUSITIS [None]
  - SWELLING [None]
  - TOOTH DISORDER [None]
  - TOOTH EXTRACTION [None]
  - TOOTH FRACTURE [None]
  - WOUND DRAINAGE [None]
